FAERS Safety Report 14744341 (Version 1)
Quarter: 2018Q2

REPORT INFORMATION
  Report Type: Spontaneous
  Country: FR (occurrence: FR)
  Receive Date: 20180411
  Receipt Date: 20180411
  Transmission Date: 20180711
  Serious: Yes (Life-Threatening)
  Sender: FDA-Public Use
  Company Number: FR-SUN PHARMACEUTICAL INDUSTRIES LTD-2018RR-169695

PATIENT
  Age: 14 Year
  Sex: Female
  Weight: 38 kg

DRUGS (2)
  1. IBUPROFEN. [Suspect]
     Active Substance: IBUPROFEN
     Indication: TONSILLITIS
     Dosage: 3 DF, UNK
     Route: 048
     Dates: start: 20180310, end: 20180312
  2. DAFALGAN [Suspect]
     Active Substance: ACETAMINOPHEN
     Indication: TONSILLITIS
     Dosage: ()
     Route: 048
     Dates: start: 20180310, end: 20180312

REACTIONS (2)
  - Septic shock [Recovered/Resolved]
  - Cellulitis [Recovering/Resolving]

NARRATIVE: CASE EVENT DATE: 20180313
